FAERS Safety Report 10154202 (Version 2)
Quarter: 2014Q2

REPORT INFORMATION
  Report Type: Spontaneous
  Country: US (occurrence: US)
  Receive Date: 20140506
  Receipt Date: 20140620
  Transmission Date: 20141212
  Serious: No
  Sender: FDA-Public Use
  Company Number: US-PFIZER INC-2014118905

PATIENT
  Age: 84 Year
  Sex: Male
  Weight: 73.92 kg

DRUGS (23)
  1. NIFEDIPINE [Suspect]
     Dosage: UNK
  2. PAZOPANIB [Concomitant]
     Indication: RENAL CANCER
     Dosage: 4 DF, DAILY
     Route: 048
     Dates: start: 20131226, end: 20140130
  3. PAZOPANIB [Concomitant]
     Dosage: 400 MG, 1X/DAY
     Route: 048
  4. PAZOPANIB [Concomitant]
     Dosage: UNK, (1 TABLET BY MOUTH EVERY MON-WED-FRI, AND 2 TABLETS EVERY SAT-SUN-TUES AND THURSDAY)
     Route: 048
  5. NORVASC [Concomitant]
     Dosage: 10 MG, DAILY
     Route: 048
  6. CLONIDINE [Concomitant]
     Dosage: UNK
  7. SYNTHROID [Concomitant]
     Dosage: 150 UG, UNK (EVERY MORNING BEFORE BREAKFAST)
     Route: 048
  8. PROVENTIL HFA [Concomitant]
     Indication: WHEEZING
     Dosage: UNK, (2 PUFFS INTO THE LUNGS EVERY 6 HOURS AS NEEDED)
  9. AMLODIPINE [Concomitant]
     Dosage: 90 MCG/ACTUATION INHALER, 2 PUFFS INTO THE LUNGS EVERY 6 (SIX) HOURS AS NEEDED
  10. ASPIRIN [Concomitant]
     Dosage: 81 MG, DAILY (WITH DINNER)
     Route: 048
  11. CALCIUM MAGNESIUM ZINC [Concomitant]
     Dosage: 1 DF, DAILY
     Route: 048
  12. COLACE [Concomitant]
     Indication: CONSTIPATION
     Dosage: 100 MG, (DAILY AS NEEDED)
     Route: 048
  13. CARDURA [Concomitant]
     Dosage: 2 MG, 2X/DAY
     Route: 048
  14. ERGOCALCIFEROL [Concomitant]
     Dosage: UNK, (2,000 UNITS BY MOUTH DAILY)
     Route: 048
  15. LASIX [Concomitant]
     Dosage: 40 MG, 2X/DAY
     Route: 048
  16. FLONASE [Concomitant]
     Dosage: UNK, 2X/DAY (1 SPRAY BY NASAL ROUTE)
     Route: 045
  17. APRESOLINE [Concomitant]
     Dosage: 25 MG, 3X/DAY
     Route: 048
  18. APRESOLINE [Concomitant]
     Dosage: 50 MG, 3X/DAY
     Route: 048
  19. COZAAR [Concomitant]
     Dosage: 50 MG, DAILY
     Route: 048
  20. K-DUR [Concomitant]
     Dosage: 20 MEQ, 2X/DAY (WITH MEALS)
     Route: 048
  21. PROTONIX [Concomitant]
     Dosage: 40 MG, UNK (EVERY MORNING BEFORE BREAKFAST)
     Route: 048
  22. KLOR CON [Concomitant]
     Dosage: 20 MEQ, 2X/DAY (WITH MEALS)
     Route: 048
  23. PANTOPRAZOLE [Concomitant]

REACTIONS (2)
  - Drug hypersensitivity [Unknown]
  - Swelling face [Unknown]
